FAERS Safety Report 8176598-7 (Version None)
Quarter: 2012Q1

REPORT INFORMATION
  Report Type: 
  Country: None (occurrence: None)
  Receive Date: 20120301
  Receipt Date: 20120223
  Transmission Date: 20120608
  Serious: Yes (Other)
  Sender: FDA-Public Use
  Company Number: CA-JNJFOC-20120211897

PATIENT
  Sex: Male
  Weight: 106.5 kg

DRUGS (6)
  1. VITAMIN B-12 [Concomitant]
     Route: 065
  2. REMICADE [Suspect]
     Indication: CROHN'S DISEASE
     Route: 042
     Dates: start: 20110821
  3. PAROXETINE [Concomitant]
     Route: 065
  4. HYDROCORTISONE [Concomitant]
     Dosage: 1 %
     Route: 065
  5. AZATHIOPRINE [Concomitant]
     Route: 065
  6. KETOCONAZOLE [Concomitant]
     Route: 065

REACTIONS (1)
  - GOUT [None]
